FAERS Safety Report 4895021-9 (Version None)
Quarter: 2006Q1

REPORT INFORMATION
  Report Type: 
  Country: None (occurrence: None)
  Receive Date: 20060130
  Receipt Date: 20050926
  Transmission Date: 20060701
  Serious: No
  Sender: FDA-Public Use
  Company Number: US-BRISTOL-MYERS SQUIBB COMPANY-13122098

PATIENT
  Age: 76 Year
  Sex: Female
  Weight: 88 kg

DRUGS (2)
  1. GLUCOPHAGE [Suspect]
     Indication: DIABETES MELLITUS
  2. ACTOS [Concomitant]

REACTIONS (1)
  - STOMACH DISCOMFORT [None]
